FAERS Safety Report 19066563 (Version 1)
Quarter: 2021Q1

REPORT INFORMATION
  Report Type: Report from Study
  Country: US (occurrence: US)
  Receive Date: 20210328
  Receipt Date: 20210328
  Transmission Date: 20210420
  Serious: Yes (Hospitalization)
  Sender: FDA-Public Use
  Company Number: US-TEVA-2021-US-1893786

PATIENT
  Age: 77 Year
  Sex: Female

DRUGS (4)
  1. LENABASUM. [Concomitant]
     Active Substance: LENABASUM
     Indication: INTERSTITIAL LUNG DISEASE
  2. METHYLPREDNISOLONE. [Suspect]
     Active Substance: METHYLPREDNISOLONE
     Indication: IMMUNOSUPPRESSANT DRUG THERAPY
     Route: 065
  3. LENABASUM. [Concomitant]
     Active Substance: LENABASUM
     Indication: SYSTEMIC SCLERODERMA
     Dosage: 40 MILLIGRAM DAILY;
     Route: 048
  4. MYCOPHENOLATE MOFETIL. [Suspect]
     Active Substance: MYCOPHENOLATE MOFETIL
     Indication: IMMUNOSUPPRESSANT DRUG THERAPY
     Route: 065

REACTIONS (1)
  - COVID-19 [Recovered/Resolved]
